FAERS Safety Report 15897992 (Version 1)
Quarter: 2019Q1

REPORT INFORMATION
  Report Type: Other
  Country: DE (occurrence: DE)
  Receive Date: 20190201
  Receipt Date: 20190201
  Transmission Date: 20190417
  Serious: No
  Sender: FDA-Public Use
  Company Number: DE-LUPIN PHARMACEUTICALS INC.-2017-07918

PATIENT
  Age: 64 Year
  Sex: Female

DRUGS (30)
  1. VENLAFAXINE [Suspect]
     Active Substance: VENLAFAXINE HYDROCHLORIDE
     Indication: DEPRESSION
     Dosage: 75 MG, UNK
     Route: 065
     Dates: start: 20141117
  2. ESCITALOPRAM OXALATE. [Suspect]
     Active Substance: ESCITALOPRAM OXALATE
     Indication: DEPRESSION
     Dosage: 20 MG, UNK
     Route: 065
     Dates: start: 20150513, end: 20161123
  3. CITALOPRAM [Suspect]
     Active Substance: CITALOPRAM HYDROBROMIDE
     Dosage: 20 MG, UNK
     Route: 065
     Dates: start: 20160203
  4. CIPRAMIL                           /00582602/ [Suspect]
     Active Substance: CITALOPRAM HYDROBROMIDE
     Dosage: 40 MG, UNK
     Route: 065
     Dates: start: 20081124
  5. CIPRAMIL                           /00582602/ [Suspect]
     Active Substance: CITALOPRAM HYDROBROMIDE
     Dosage: 40 MG, UNK
     Route: 065
     Dates: start: 20090326
  6. VENLAFAXINE [Suspect]
     Active Substance: VENLAFAXINE HYDROCHLORIDE
     Dosage: 225 MG, UNK
     Route: 065
     Dates: start: 20141208
  7. ESCITALOPRAM OXALATE. [Suspect]
     Active Substance: ESCITALOPRAM OXALATE
     Indication: DEPRESSION
     Dosage: 20 MG, QD
     Route: 048
  8. CITALOPRAM [Suspect]
     Active Substance: CITALOPRAM HYDROBROMIDE
     Dosage: 10 MG, UNK
     Route: 065
     Dates: start: 20080908
  9. CITALOPRAM [Suspect]
     Active Substance: CITALOPRAM HYDROBROMIDE
     Dosage: 20 MG, UNK
     Route: 065
     Dates: start: 20161123
  10. CITALOPRAM [Suspect]
     Active Substance: CITALOPRAM HYDROBROMIDE
     Dosage: 40 MG, UNK
     Route: 065
     Dates: start: 20111006
  11. CIPRAMIL                           /00582602/ [Suspect]
     Active Substance: CITALOPRAM HYDROBROMIDE
     Dosage: 20 MG, UNK
     Route: 065
     Dates: start: 20080716
  12. CIPRAMIL                           /00582602/ [Suspect]
     Active Substance: CITALOPRAM HYDROBROMIDE
     Dosage: 40 MG, UNK
     Route: 065
     Dates: start: 20120803
  13. CIPRALEX [Suspect]
     Active Substance: ESCITALOPRAM OXALATE
     Dosage: 20 MG, UNK
     Route: 065
     Dates: start: 20131016
  14. CITALOPRAM [Suspect]
     Active Substance: CITALOPRAM HYDROBROMIDE
     Dosage: 20 MG, UNK
     Route: 065
     Dates: start: 20160921
  15. CIPRAMIL                           /00582602/ [Suspect]
     Active Substance: CITALOPRAM HYDROBROMIDE
     Dosage: 20 MG, UNK
     Route: 065
     Dates: start: 20091109
  16. CIPRAMIL                           /00582602/ [Suspect]
     Active Substance: CITALOPRAM HYDROBROMIDE
     Dosage: 20 MG, UNK
     Route: 065
     Dates: start: 20110131
  17. CIPRALEX [Suspect]
     Active Substance: ESCITALOPRAM OXALATE
     Indication: DEPRESSION
     Dosage: 20 MG, QD
     Route: 065
     Dates: start: 20130429
  18. CIPRALEX [Suspect]
     Active Substance: ESCITALOPRAM OXALATE
     Dosage: 20 MG, UNK
     Route: 065
     Dates: start: 20131216
  19. CIPRALEX [Suspect]
     Active Substance: ESCITALOPRAM OXALATE
     Dosage: 20 MG, UNK
     Route: 065
     Dates: start: 20140226, end: 201411
  20. VENLAFAXINE [Suspect]
     Active Substance: VENLAFAXINE HYDROCHLORIDE
     Dosage: 150 MG, UNK
     Route: 065
     Dates: start: 20141117
  21. CITALOPRAM [Suspect]
     Active Substance: CITALOPRAM HYDROBROMIDE
     Indication: DEPRESSION
     Dosage: 20 MG, UNK
     Route: 065
     Dates: start: 20080521
  22. CIPRAMIL                           /00582602/ [Suspect]
     Active Substance: CITALOPRAM HYDROBROMIDE
     Dosage: 20 MG, UNK
     Route: 065
     Dates: start: 20080918
  23. CIPRAMIL                           /00582602/ [Suspect]
     Active Substance: CITALOPRAM HYDROBROMIDE
     Dosage: 40 MG, UNK
     Route: 065
     Dates: start: 20090603
  24. CIPRAMIL                           /00582602/ [Suspect]
     Active Substance: CITALOPRAM HYDROBROMIDE
     Dosage: 40 MG, UNK
     Route: 065
     Dates: start: 20120621
  25. CIPRAMIL                           /00582602/ [Suspect]
     Active Substance: CITALOPRAM HYDROBROMIDE
     Dosage: 20 MG, UNK
     Route: 065
     Dates: start: 20130712
  26. CIPRAMIL                           /00582602/ [Suspect]
     Active Substance: CITALOPRAM HYDROBROMIDE
     Indication: DEPRESSION
     Dosage: 40 MG, UNK
     Route: 065
     Dates: start: 20080204
  27. CIPRAMIL                           /00582602/ [Suspect]
     Active Substance: CITALOPRAM HYDROBROMIDE
     Dosage: 40 MG, UNK
     Route: 065
     Dates: start: 20120210
  28. CIPRAMIL                           /00582602/ [Suspect]
     Active Substance: CITALOPRAM HYDROBROMIDE
     Dosage: 40 MG, UNK
     Route: 065
     Dates: start: 20100127
  29. CIPRAMIL                           /00582602/ [Suspect]
     Active Substance: CITALOPRAM HYDROBROMIDE
     Dosage: 20 MG, UNK
     Route: 065
     Dates: start: 20100625
  30. CIPRAMIL                           /00582602/ [Suspect]
     Active Substance: CITALOPRAM HYDROBROMIDE
     Dosage: 20 MG, UNK
     Route: 065
     Dates: start: 20100903

REACTIONS (5)
  - Drug ineffective [Unknown]
  - Dyspepsia [Unknown]
  - Nausea [Unknown]
  - Weight decreased [Unknown]
  - Weight increased [Not Recovered/Not Resolved]
